FAERS Safety Report 7278460-0 (Version None)
Quarter: 2011Q1

REPORT INFORMATION
  Report Type: 
  Country: None (occurrence: None)
  Receive Date: 20110207
  Receipt Date: 20110203
  Transmission Date: 20110831
  Serious: Yes (Other)
  Sender: FDA-Public Use
  Company Number: US-PFIZER INC-2011025283

PATIENT
  Sex: Female
  Weight: 43.084 kg

DRUGS (8)
  1. ZYPREXA [Suspect]
     Indication: SCHIZOAFFECTIVE DISORDER
     Dosage: UNK
  2. WELLBUTRIN [Concomitant]
     Indication: DEPRESSION
     Dosage: 450 MG, 1X/DAY
     Route: 048
  3. PRIMIDONE [Concomitant]
     Dosage: 250 MG, 2X/DAY
  4. RISPERIDONE [Suspect]
     Indication: SCHIZOAFFECTIVE DISORDER
     Dosage: UNK
  5. GEODON [Suspect]
     Indication: SCHIZOAFFECTIVE DISORDER
     Dosage: 80 MG, 2X/DAY
  6. TOPAMAX [Concomitant]
     Indication: AFFECTIVE DISORDER
     Dosage: 100MG IN THE MORNING AND 200MG AT NIGHT
     Route: 048
  7. ABILIFY [Suspect]
     Indication: SCHIZOAFFECTIVE DISORDER
     Dosage: UNK
  8. DOMPERIDONE [Suspect]
     Dosage: 10 MG, UNK

REACTIONS (10)
  - DYSPHAGIA [None]
  - ULCER [None]
  - MICTURITION DISORDER [None]
  - WEIGHT DECREASED [None]
  - FLATULENCE [None]
  - TARDIVE DYSKINESIA [None]
  - URINARY RETENTION [None]
  - WEIGHT INCREASED [None]
  - GASTRIC DISORDER [None]
  - GASTRITIS [None]
